FAERS Safety Report 5951735-0 (Version None)
Quarter: 2008Q4

REPORT INFORMATION
  Report Type: 
  Country: None (occurrence: None)
  Receive Date: 20081113
  Receipt Date: 20081110
  Transmission Date: 20090506
  Serious: Yes (Other)
  Sender: FDA-Public Use
  Company Number: US-MERCK-0810USA01983

PATIENT
  Age: 60 Year
  Sex: Male

DRUGS (2)
  1. JANUMET [Suspect]
     Indication: DIABETES MELLITUS
     Route: 048
     Dates: start: 20080901, end: 20080901
  2. METFORMIN [Concomitant]
     Route: 065
     Dates: start: 20080801, end: 20080901

REACTIONS (2)
  - HEPATIC ENZYME ABNORMAL [None]
  - PANCREATIC CARCINOMA [None]
